FAERS Safety Report 13790898 (Version 3)
Quarter: 2017Q3

REPORT INFORMATION
  Report Type: Spontaneous
  Country: US (occurrence: US)
  Receive Date: 20170725
  Receipt Date: 20170908
  Transmission Date: 20171127
  Serious: Yes (Death)
  Sender: FDA-Public Use
  Company Number: US-BAYER-2017-139958

PATIENT
  Age: 30 Year
  Sex: Male

DRUGS (2)
  1. TRASYLOL [Suspect]
     Active Substance: APROTININ
     Dosage: UNK
  2. BAYER ASPIRIN [Suspect]
     Active Substance: ASPIRIN
     Dosage: UNK

REACTIONS (1)
  - Myocardial infarction [Fatal]
